FAERS Safety Report 6813599-2 (Version None)
Quarter: 2010Q3

REPORT INFORMATION
  Report Type: 
  Country: None (occurrence: None)
  Receive Date: 20100701
  Receipt Date: 20100628
  Transmission Date: 20110219
  Serious: Yes (Hospitalization, Other)
  Sender: FDA-Public Use
  Company Number: GB-PFIZER INC-2010072108

PATIENT
  Age: 65 Year
  Sex: Male

DRUGS (11)
  1. ATORVASTATIN CALCIUM [Suspect]
     Dosage: 40 MG, 1X/DAY
  2. FUSIDIC ACID [Interacting]
     Indication: LOCALISED INFECTION
     Dosage: 500 MG, 3X/DAY
  3. INSULIN GLARGINE [Concomitant]
     Indication: DIABETES MELLITUS
  4. GLICLAZIDE [Concomitant]
     Indication: DIABETES MELLITUS
     Dosage: 80MG IN MORNING, 40MG AT NIGHT
  5. CARVEDILOL [Concomitant]
     Indication: OSTEOMYELITIS
     Dosage: 2.5 MG, 2X/DAY
  6. CARBIMAZOLE [Concomitant]
     Dosage: 5 MG, UNK
  7. ACETYLSALICYLIC ACID [Concomitant]
     Dosage: 75 MG, UNK
  8. ALLOPURINOL [Concomitant]
     Dosage: 100 MG, UNK
  9. RAMIPRIL [Concomitant]
     Dosage: 5 MG, UNK
  10. FRUSEMIDE [Concomitant]
     Dosage: 120 MG, UNK
  11. LANSOPRAZOLE [Concomitant]
     Dosage: 30 MG, UNK

REACTIONS (5)
  - DRUG INTERACTION [None]
  - HAEMODIALYSIS [None]
  - QUADRIPARESIS [None]
  - RENAL FAILURE [None]
  - RHABDOMYOLYSIS [None]
